FAERS Safety Report 5130588-7 (Version None)
Quarter: 2006Q4

REPORT INFORMATION
  Report Type: 
  Country: None (occurrence: None)
  Receive Date: 20061019
  Receipt Date: 20061013
  Transmission Date: 20070319
  Serious: Yes (Hospitalization, Other)
  Sender: FDA-Public Use
  Company Number: US-AVENTIS-200618552US

PATIENT
  Sex: Female

DRUGS (7)
  1. LOVENOX [Suspect]
     Indication: HEREDITARY DISORDER
     Route: 058
     Dates: start: 20050902, end: 20050918
  2. GONAL-F [Concomitant]
     Dosage: DOSE: UNK
  3. HEPAGRISEVIT FORTE-N               /01079901/ [Concomitant]
     Dosage: DOSE: UNK
  4. ASPIRIN [Concomitant]
     Dosage: DOSE: UNK
  5. PRENATAL VITAMINS                  /01549301/ [Concomitant]
     Dosage: DOSE: UNK
  6. METHOTREXATE [Concomitant]
     Dosage: DOSE: UNK
     Dates: start: 20050918, end: 20050918
  7. METHOTREXATE [Concomitant]
     Dosage: DOSE: UNK
     Dates: start: 20050926, end: 20050926

REACTIONS (5)
  - DRUG EXPOSURE DURING PREGNANCY [None]
  - INJECTION SITE BRUISING [None]
  - INJECTION SITE IRRITATION [None]
  - INJECTION SITE PAIN [None]
  - RUPTURED ECTOPIC PREGNANCY [None]
